FAERS Safety Report 5626469-2 (Version None)
Quarter: 2008Q1

REPORT INFORMATION
  Report Type: 
  Country: None (occurrence: None)
  Receive Date: 20080214
  Receipt Date: 20080204
  Transmission Date: 20080703
  Serious: Yes (Death, Hospitalization, Other)
  Sender: FDA-Public Use
  Company Number: US-ELI_LILLY_AND_COMPANY-US200708006554

PATIENT
  Sex: Male
  Weight: 65.76 kg

DRUGS (6)
  1. FORTEO [Suspect]
     Indication: OSTEOPOROSIS
     Dosage: 20 UG, DAILY (1/D)
     Dates: start: 20060601, end: 20060101
  2. FOSAMAX [Concomitant]
     Dosage: 70 MG, WEEKLY (1/W)
     Dates: end: 20060601
  3. CALCIUM W/VITAMIN D NOS [Concomitant]
     Dosage: 2-4
  4. DIGITEK [Concomitant]
     Dosage: 0.25 MG, DAILY (1/D)
  5. TAGAMET [Concomitant]
     Dosage: 300 MG, AS NEEDED
  6. HYDROCODONE W/APAP [Concomitant]
     Dosage: 7.5/500

REACTIONS (13)
  - ASTHENIA [None]
  - BLADDER CANCER [None]
  - BONE PAIN [None]
  - CARDIOMYOPATHY [None]
  - CHRONIC OBSTRUCTIVE PULMONARY DISEASE [None]
  - CORONARY ARTERY DISEASE [None]
  - HYPONATRAEMIA [None]
  - HYPOTENSION [None]
  - HYPOXIA [None]
  - LUNG NEOPLASM MALIGNANT [None]
  - PULMONARY MASS [None]
  - RENAL FAILURE [None]
  - SEPSIS [None]
